FAERS Safety Report 20741388 (Version 1)
Quarter: 2022Q2

REPORT INFORMATION
  Report Type: Report from Study
  Country: US (occurrence: US)
  Receive Date: 20220422
  Receipt Date: 20220422
  Transmission Date: 20220721
  Serious: Yes (Other)
  Sender: FDA-Public Use
  Company Number: US-ARBOR PHARMACEUTICALS, LLC-US-2022ARB000271

PATIENT
  Sex: Female

DRUGS (7)
  1. TRIPTODUR [Suspect]
     Active Substance: TRIPTORELIN
     Indication: Product used for unknown indication
     Dosage: UNK, SINGLE
     Route: 030
     Dates: start: 20220104, end: 20220104
  2. TRIPTODUR [Suspect]
     Active Substance: TRIPTORELIN
  3. TRIPTODUR [Suspect]
     Active Substance: TRIPTORELIN
  4. EFFEXOR [Concomitant]
     Active Substance: VENLAFAXINE HYDROCHLORIDE
     Indication: Product used for unknown indication
     Dosage: UNK
  5. LAMICTAL [Concomitant]
     Active Substance: LAMOTRIGINE
     Indication: Product used for unknown indication
     Dosage: 25 MILLIGRAM
     Route: 048
  6. FOCALIN [Concomitant]
     Active Substance: DEXMETHYLPHENIDATE HYDROCHLORIDE
     Indication: Attention deficit hyperactivity disorder
     Dosage: 10 MILLIGRAM
     Route: 048
  7. VISTARIL [Concomitant]
     Active Substance: HYDROXYZINE PAMOATE
     Indication: Product used for unknown indication
     Dosage: UNK

REACTIONS (4)
  - Attention deficit hyperactivity disorder [Recovering/Resolving]
  - Condition aggravated [Recovering/Resolving]
  - Female reproductive tract disorder [Not Recovered/Not Resolved]
  - Vulvovaginal dryness [Not Recovered/Not Resolved]

NARRATIVE: CASE EVENT DATE: 20220101
